FAERS Safety Report 6843016-8 (Version None)
Quarter: 2010Q3

REPORT INFORMATION
  Report Type: 
  Country: None (occurrence: None)
  Receive Date: 20100714
  Receipt Date: 20071020
  Transmission Date: 20110219
  Serious: No
  Sender: FDA-Public Use
  Company Number: US-PFIZER INC-2007066713

PATIENT
  Sex: Female
  Weight: 62.727 kg

DRUGS (3)
  1. CHANTIX [Suspect]
     Indication: SMOKING CESSATION THERAPY
     Dates: start: 20070701, end: 20070901
  2. XANAX [Concomitant]
  3. ACETYLSALICYLIC ACID [Concomitant]

REACTIONS (4)
  - BACK PAIN [None]
  - EMOTIONAL DISORDER [None]
  - NASOPHARYNGITIS [None]
  - NAUSEA [None]
